FAERS Safety Report 12259789 (Version 2)
Quarter: 2016Q2

REPORT INFORMATION
  Report Type: Report from Study
  Country: SE (occurrence: SE)
  Receive Date: 20160412
  Receipt Date: 20160422
  Transmission Date: 20160815
  Serious: Yes (Death)
  Sender: FDA-Public Use
  Company Number: SE-HQ SPECIALTY-SE-2016INT000184

PATIENT
  Age: 69 Year
  Sex: Male
  Weight: 120 kg

DRUGS (3)
  1. DEXMEDETOMIDINE HYDROCHLORIDE. [Suspect]
     Active Substance: DEXMEDETOMIDINE HYDROCHLORIDE
     Indication: PRODUCT USED FOR UNKNOWN INDICATION
     Dosage: STRENGTH 8 MCG/ML, TOTAL DOSE 41580 MCG
     Route: 042
     Dates: start: 20141027, end: 20141112
  2. PROPOFOL. [Suspect]
     Active Substance: PROPOFOL
     Indication: PRODUCT USED FOR UNKNOWN INDICATION
     Dosage: STRENGTH 10 MG/ML, TOTAL DOSE 8565 MG
     Dates: start: 20141109, end: 20141112
  3. MIDAZOLAM [Suspect]
     Active Substance: MIDAZOLAM\MIDAZOLAM HYDROCHLORIDE
     Indication: PRODUCT USED FOR UNKNOWN INDICATION
     Dosage: STRENGTH 1 MG/ML, TOTAL DOSE 17 MG
     Dates: start: 20141029, end: 20141108

REACTIONS (1)
  - Pulmonary embolism [Fatal]

NARRATIVE: CASE EVENT DATE: 20141112
